FAERS Safety Report 5675619-0 (Version None)
Quarter: 2008Q1

REPORT INFORMATION
  Report Type: 
  Country: None (occurrence: None)
  Receive Date: 20080321
  Receipt Date: 20080312
  Transmission Date: 20080703
  Serious: Yes (Hospitalization)
  Sender: FDA-Public Use
  Company Number: US-AMGEN-US269345

PATIENT
  Sex: Male

DRUGS (8)
  1. EPOGEN [Suspect]
     Indication: RENAL FAILURE CHRONIC
     Dates: start: 20060101, end: 20080101
  2. SENSIPAR [Concomitant]
  3. LISINOPRIL [Concomitant]
  4. AMLODIPINE [Concomitant]
  5. FOLIC ACID [Concomitant]
  6. METOPROLOL TARTRATE [Concomitant]
  7. RENAGEL [Concomitant]
  8. ZEMPLAR [Concomitant]

REACTIONS (1)
  - ANAEMIA [None]
